APPROVED DRUG PRODUCT: BACITRACIN ZINC-POLYMYXIN B SULFATE
Active Ingredient: BACITRACIN ZINC; POLYMYXIN B SULFATE
Strength: 500 UNITS/GM;10,000 UNITS/GM
Dosage Form/Route: OINTMENT;TOPICAL
Application: A062849 | Product #001
Applicant: NASKA PHARMACAL CO INC DIV RUGBY DARBY GROUP COSMETICS
Approved: Nov 13, 1987 | RLD: No | RS: No | Type: DISCN